FAERS Safety Report 4824688-6 (Version None)
Quarter: 2005Q4

REPORT INFORMATION
  Report Type: 
  Country: None (occurrence: None)
  Receive Date: 20051012
  Receipt Date: 20050831
  Transmission Date: 20060501
  Serious: No
  Sender: FDA-Public Use
  Company Number: 2005S1000189

PATIENT
  Age: 85 Year
  Weight: 88 kg

DRUGS (23)
  1. CUBICIN [Suspect]
     Indication: POSTOPERATIVE WOUND INFECTION
     Dosage: 500 MG; Q24H; IV
     Route: 042
     Dates: start: 20050819
  2. CUBICIN [Suspect]
     Indication: STAPHYLOCOCCAL INFECTION
     Dosage: 500 MG; Q24H; IV
     Route: 042
     Dates: start: 20050819
  3. METOLAZONE [Concomitant]
  4. SPIRONOLACTONE [Concomitant]
  5. TAMSULOSIN [Concomitant]
  6. VITAMIN B-12 [Concomitant]
  7. VITAMIN B6 [Concomitant]
  8. ACETYLSALICYLIC ACID [Concomitant]
  9. CARVEDILOL [Concomitant]
  10. PREDNISONE [Concomitant]
  11. CALCIUM GLUCONATE [Concomitant]
  12. POTASSIUM CHLORIDE [Concomitant]
  13. LEVOTHYROXINE SODIUM [Concomitant]
  14. FERROUS SULFATE TAB [Concomitant]
  15. LANSOPRAZOLE [Concomitant]
  16. VITAMIN E [Concomitant]
  17. FENOFIBRATE [Concomitant]
  18. NITROGLYCERIN [Concomitant]
  19. FUROSEMIDE [Concomitant]
  20. ALBUTEROL [Concomitant]
  21. PROPOXYPHENE HCL AND ACETAMINOPHEN [Concomitant]
  22. TETRACYCLINE [Concomitant]
  23. CEPHALEXIN [Concomitant]

REACTIONS (2)
  - BLOOD CREATININE INCREASED [None]
  - BLOOD UREA INCREASED [None]
